FAERS Safety Report 4843934-6 (Version None)
Quarter: 2005Q4

REPORT INFORMATION
  Report Type: 
  Country: None (occurrence: None)
  Receive Date: 20051202
  Receipt Date: 20050630
  Transmission Date: 20060501
  Serious: No
  Sender: FDA-Public Use
  Company Number: US-GLAXOSMITHKLINE-A0564983A

PATIENT
  Sex: Female

DRUGS (1)
  1. AUGMENTIN [Suspect]
     Indication: INFECTION
     Dosage: 1000MG SEE DOSAGE TEXT
     Route: 048

REACTIONS (4)
  - ABDOMINAL PAIN [None]
  - BACK PAIN [None]
  - DRUG WITHDRAWAL SYNDROME [None]
  - PRURITUS [None]
